FAERS Safety Report 12597237 (Version 1)
Quarter: 2016Q3

REPORT INFORMATION
  Report Type: Spontaneous
  Country: IT (occurrence: IT)
  Receive Date: 20160727
  Receipt Date: 20160727
  Transmission Date: 20161109
  Serious: Yes (Hospitalization)
  Sender: FDA-Public Use
  Company Number: IT-TEVA-679250ACC

PATIENT
  Age: 33 Year
  Sex: Female
  Weight: 95 kg

DRUGS (3)
  1. DELORAZEPAM [Concomitant]
     Active Substance: DELORAZEPAM
     Indication: ANXIETY
     Dosage: 5 GTT
     Route: 048
     Dates: start: 20160521, end: 20160530
  2. COPAXONE [Suspect]
     Active Substance: GLATIRAMER ACETATE
     Indication: RELAPSING-REMITTING MULTIPLE SCLEROSIS
     Dosage: 3 DF WEEKLY
     Route: 058
     Dates: start: 20160523, end: 20160530
  3. MANTADAN - 100 MG COMPRESSE [Concomitant]
     Active Substance: AMANTADINE HYDROCHLORIDE
     Indication: RELAPSING-REMITTING MULTIPLE SCLEROSIS
     Dates: start: 20160509, end: 20160530

REACTIONS (7)
  - Feeling hot [Recovered/Resolved]
  - Urticaria [None]
  - Erythema [Recovered/Resolved]
  - Oropharyngeal discomfort [Recovered/Resolved]
  - Pruritus [Recovered/Resolved]
  - Tachycardia [Recovered/Resolved]
  - Tongue disorder [Recovered/Resolved]

NARRATIVE: CASE EVENT DATE: 20160530
